FAERS Safety Report 20109730 (Version 1)
Quarter: 2021Q4

REPORT INFORMATION
  Report Type: Report from Study
  Country: CA (occurrence: CA)
  Receive Date: 20211124
  Receipt Date: 20211124
  Transmission Date: 20220303
  Serious: Yes (Hospitalization)
  Sender: FDA-Public Use
  Company Number: CA-ALNYLAM PHARMACEUTICALS, INC.-ALN-2021-002487

PATIENT

DRUGS (12)
  1. OXLUMO [Suspect]
     Active Substance: LUMASIRAN
     Indication: Primary hyperoxaluria
     Dosage: 180 MILLIGRAM, Q3M
     Route: 058
     Dates: start: 20211005
  2. OXLUMO [Suspect]
     Active Substance: LUMASIRAN
     Dosage: 196 MILLIGRAM
     Route: 058
     Dates: start: 20210730
  3. OXLUMO [Suspect]
     Active Substance: LUMASIRAN
     Dosage: 196 MILLIGRAM
     Route: 058
     Dates: start: 20210630
  4. OXLUMO [Suspect]
     Active Substance: LUMASIRAN
     Dosage: 3 MILLIGRAM/KILOGRAM, Q4W
     Route: 058
     Dates: start: 20210603
  5. ASPIRIN [Concomitant]
     Active Substance: ASPIRIN
     Indication: Prophylaxis
     Dosage: 81 MILLIGRAM, QD
     Route: 048
  6. CALCITRIOL [Concomitant]
     Active Substance: CALCITRIOL
     Indication: Hyperparathyroidism secondary
     Dosage: 0.5 MICROGRAM, QD
     Route: 048
  7. IRON SUCROSE [Concomitant]
     Active Substance: IRON SUCROSE
     Indication: Anaemia of chronic disease
     Dosage: 100 MILLIGRAM, EVERY 2 WEEKS
     Route: 042
  8. PANTOPRAZOLE [Concomitant]
     Active Substance: PANTOPRAZOLE
     Indication: Gastrooesophageal reflux disease
     Dosage: 40 MILLIGRAM, QD
     Route: 048
  9. VITAMIN B6 [Concomitant]
     Active Substance: PYRIDOXINE HYDROCHLORIDE
     Indication: Primary hyperoxaluria
     Dosage: 1400 MILLIGRAM, QD
     Route: 048
  10. SIMVASTATIN [Concomitant]
     Active Substance: SIMVASTATIN
     Indication: Prophylaxis
     Dosage: 10 MILLIGRAM, QD
     Route: 048
  11. Replavite [Concomitant]
     Indication: Vitamin supplementation
     Dosage: 1 DOSAGE FORM, QD
     Route: 048
  12. DALTEPARIN [Concomitant]
     Active Substance: DALTEPARIN
     Indication: Haemodialysis
     Dosage: 2500 INTERNATIONAL UNIT, HEMODIALYSIS (HD) TREATMENT
     Route: 042

REACTIONS (7)
  - Renal transplant [Unknown]
  - Liver transplant [Unknown]
  - General physical health deterioration [Unknown]
  - Product dose omission in error [Unknown]
  - Incorrect dose administered [Unknown]
  - Injection site pain [Recovered/Resolved]
  - Weight decreased [Unknown]

NARRATIVE: CASE EVENT DATE: 20210101
